FAERS Safety Report 5120643-X (Version None)
Quarter: 2006Q4

REPORT INFORMATION
  Report Type: 
  Country: None (occurrence: None)
  Receive Date: 20061002
  Receipt Date: 20060829
  Transmission Date: 20070319
  Serious: Yes (Death, Other)
  Sender: FDA-Public Use
  Company Number: 2006SP000442

PATIENT
  Sex: Male

DRUGS (2)
  1. POSACONAZOLE [Suspect]
     Indication: FUNGAL INFECTION
     Dates: start: 20060601
  2. AMBISOME [Concomitant]

REACTIONS (6)
  - AREFLEXIA [None]
  - DISEASE PROGRESSION [None]
  - MUSCULAR WEAKNESS [None]
  - NERVOUS SYSTEM DISORDER [None]
  - PATHOGEN RESISTANCE [None]
  - SYSTEMIC CANDIDA [None]
